FAERS Safety Report 8446366 (Version 2)
Quarter: 2014Q2

REPORT INFORMATION
  Report Type: Report from Study
  Country: US (occurrence: US)
  Receive Date: 20120307
  Receipt Date: 20140630
  Transmission Date: 20141212
  Serious: Yes (Other)
  Sender: FDA-Public Use
  Company Number: US-B.I. PHARMACEUTICALS,INC./RIDGEFIELD-2012-BP-04321BP

PATIENT
  Age: 0 Day
  Sex: Male
  Weight: 1.41 kg

DRUGS (3)
  1. VIRAMUNE [Suspect]
     Indication: EXPOSURE DURING PREGNANCY
     Dosage: 400 MG
     Route: 064
  2. TRUVADA [Concomitant]
     Indication: EXPOSURE DURING PREGNANCY
     Route: 064
  3. ZIDOVUDINE [Concomitant]
     Indication: EXPOSURE DURING PREGNANCY
     Dosage: 2000 MG
     Route: 064
     Dates: start: 20111125

REACTIONS (2)
  - Low birth weight baby [Unknown]
  - Premature baby [Unknown]
